FAERS Safety Report 7215729-X (Version None)
Quarter: 2011Q1

REPORT INFORMATION
  Report Type: 
  Country: None (occurrence: None)
  Receive Date: 20110107
  Receipt Date: 20101228
  Transmission Date: 20110831
  Serious: Yes (Hospitalization)
  Sender: FDA-Public Use
  Company Number: US-CEPHALON-2010006632

PATIENT
  Sex: Male
  Weight: 67 kg

DRUGS (14)
  1. IMIPRAMINE [Concomitant]
  2. RISPERDAL [Concomitant]
  3. PROVIGIL [Suspect]
     Indication: CATAPLEXY
  4. PRISTIQ [Concomitant]
     Dates: start: 20101201
  5. ADDERALL 10 [Concomitant]
  6. CYMBALTA [Concomitant]
  7. RITALIN [Suspect]
  8. NAVANE [Concomitant]
  9. CONCERTA [Concomitant]
  10. CYLERT [Concomitant]
  11. DEXEDRINE [Suspect]
     Dates: start: 19850101
  12. PROVIGIL [Suspect]
     Indication: NARCOLEPSY
     Route: 048
     Dates: start: 20000101, end: 20101217
  13. CLONAZEPAM [Concomitant]
  14. EFFEXOR XR [Concomitant]
     Dates: start: 20060101

REACTIONS (11)
  - PARANOIA [None]
  - GENERAL PHYSICAL HEALTH DETERIORATION [None]
  - NERVOUSNESS [None]
  - BLOOD PRESSURE INCREASED [None]
  - HEART RATE INCREASED [None]
  - MENTAL DISORDER [None]
  - ANXIETY [None]
  - SOMNOLENCE [None]
  - DRUG TOLERANCE [None]
  - TENSION [None]
  - PALPITATIONS [None]
